FAERS Safety Report 5841120-4 (Version None)
Quarter: 2008Q3

REPORT INFORMATION
  Report Type: 
  Country: None (occurrence: None)
  Receive Date: 20080807
  Receipt Date: 20080807
  Transmission Date: 20090109
  Serious: Yes (Other)
  Sender: FDA-Public Use
  Company Number: None

PATIENT
  Age: 41 Year
  Sex: Female
  Weight: 48.0813 kg

DRUGS (2)
  1. BOTOX [Suspect]
     Indication: SKIN COSMETIC PROCEDURE
     Dosage: 34 UNITS SQ  : 29 UNITS SQ
     Route: 058
     Dates: start: 20080130, end: 20080417
  2. BOTOX [Suspect]
     Indication: SKIN COSMETIC PROCEDURE
     Dosage: 34 UNITS SQ  : 29 UNITS SQ
     Route: 058
     Dates: start: 20080417, end: 20080626

REACTIONS (11)
  - ANXIETY [None]
  - AUTOIMMUNE DISORDER [None]
  - CYANOSIS [None]
  - DERMATITIS HERPETIFORMIS [None]
  - ECZEMA [None]
  - HYPERSENSITIVITY [None]
  - LYMPHADENOPATHY [None]
  - OROPHARYNGEAL BLISTERING [None]
  - RASH PRURITIC [None]
  - SCRATCH [None]
  - SKIN EXFOLIATION [None]
